FAERS Safety Report 9215807 (Version 2)
Quarter: 2013Q2

REPORT INFORMATION
  Report Type: Spontaneous
  Country: MX (occurrence: None)
  Receive Date: 20130404
  Receipt Date: 20130517
  Transmission Date: 20140414
  Serious: Yes (Death)
  Sender: FDA-Public Use
  Company Number: ENTC2013-0128

PATIENT
  Age: 83 Year
  Sex: Male

DRUGS (4)
  1. STALEVO (LEVODOPA, CARBIDOPA, ENTACAPONE) [Suspect]
     Dates: start: 200601
  2. GALVUS MET [Suspect]
     Indication: DIABETES MELLITUS
     Dosage: STRENGTH: 850/50 MG
     Route: 048
     Dates: start: 201101
  3. KINEX [Concomitant]
  4. MADOPAR [Concomitant]

REACTIONS (1)
  - Pneumonia [None]
